FAERS Safety Report 4460802-2 (Version None)
Quarter: 2004Q3

REPORT INFORMATION
  Report Type: 
  Country: None (occurrence: None)
  Receive Date: 20040928
  Receipt Date: 20040806
  Transmission Date: 20050211
  Serious: No
  Sender: FDA-Public Use
  Company Number: US-GLAXOSMITHKLINE-A0521311A

PATIENT
  Age: 84 Year
  Sex: Male

DRUGS (12)
  1. ADVAIR DISKUS 100/50 [Suspect]
     Indication: EMPHYSEMA
     Dosage: 1PUFF THREE TIMES PER DAY
     Route: 055
  2. CARDURA [Concomitant]
  3. PROSCAR [Concomitant]
  4. PLAVIX [Concomitant]
  5. PLETAL [Concomitant]
  6. ASPIRIN [Concomitant]
  7. FUROSEMIDE [Concomitant]
  8. POTASSIUM [Concomitant]
  9. PREDNISONE [Concomitant]
  10. COMBIVENT [Concomitant]
  11. NEXIUM [Concomitant]
  12. SPIRIVA [Concomitant]

REACTIONS (3)
  - DIZZINESS [None]
  - DRUG INEFFECTIVE [None]
  - MEDICATION ERROR [None]
